FAERS Safety Report 9727053 (Version 1)
Quarter: 2013Q4

REPORT INFORMATION
  Report Type: Spontaneous
  Country: MX (occurrence: MX)
  Receive Date: 20131203
  Receipt Date: 20131203
  Transmission Date: 20140711
  Serious: Yes (Death)
  Sender: FDA-Public Use
  Company Number: MX-PFIZER INC-2013344649

PATIENT
  Age: 69 Year
  Sex: Male
  Weight: 78 kg

DRUGS (1)
  1. LYRICA [Suspect]
     Indication: PHANTOM PAIN
     Dosage: 150 MG, 2X/DAY
     Route: 048
     Dates: start: 201306, end: 201309

REACTIONS (2)
  - Off label use [Fatal]
  - Skin cancer [Fatal]
